FAERS Safety Report 6931171-0 (Version None)
Quarter: 2010Q3

REPORT INFORMATION
  Report Type: 
  Country: None (occurrence: None)
  Receive Date: 20100818
  Receipt Date: 20100811
  Transmission Date: 20110219
  Serious: Yes (Other)
  Sender: FDA-Public Use
  Company Number: CA-AMGEN-QUU419664

PATIENT
  Sex: Male
  Weight: 125 kg

DRUGS (6)
  1. NPLATE [Suspect]
     Indication: IDIOPATHIC THROMBOCYTOPENIC PURPURA
     Route: 058
     Dates: start: 20090911, end: 20100614
  2. FRAGMIN [Concomitant]
  3. NORVASC [Concomitant]
  4. CRESTOR [Concomitant]
  5. SPIRONOLACTONE [Concomitant]
  6. NASONEX [Concomitant]

REACTIONS (4)
  - DIARRHOEA [None]
  - DIZZINESS [None]
  - DRUG INEFFECTIVE [None]
  - HEADACHE [None]
